FAERS Safety Report 20886695 (Version 1)
Quarter: 2022Q2

REPORT INFORMATION
  Report Type: Report from Study
  Country: US (occurrence: US)
  Receive Date: 20220527
  Receipt Date: 20220527
  Transmission Date: 20220720
  Serious: Yes (Hospitalization, Other)
  Sender: FDA-Public Use
  Company Number: US-TEVA-2022-US-2040414

PATIENT
  Sex: Female
  Weight: 71 kg

DRUGS (3)
  1. AMBRISENTAN [Suspect]
     Active Substance: AMBRISENTAN
     Indication: Pulmonary arterial hypertension
     Dosage: 5 MILLIGRAM DAILY;
     Route: 048
     Dates: start: 20210907, end: 20220412
  2. SILDENAFIL CITRATE [Suspect]
     Active Substance: SILDENAFIL CITRATE
     Dosage: 60 MILLIGRAM DAILY;
     Dates: start: 20220412
  3. AMMONIUM CHLORIDE [Suspect]
     Active Substance: AMMONIUM CHLORIDE
     Indication: Cough
     Dosage: 30 ML DAILY;
     Dates: start: 20220426

REACTIONS (5)
  - Right ventricular failure [Recovered/Resolved]
  - Chest discomfort [Recovered/Resolved]
  - Performance status decreased [Recovered/Resolved]
  - N-terminal prohormone brain natriuretic peptide increased [Recovered/Resolved]
  - Pyrexia [Recovered/Resolved]

NARRATIVE: CASE EVENT DATE: 20220413
